FAERS Safety Report 7645681-4 (Version None)
Quarter: 2011Q3

REPORT INFORMATION
  Report Type: 
  Country: None (occurrence: None)
  Receive Date: 20110729
  Receipt Date: 20101011
  Transmission Date: 20111222
  Serious: Yes (Hospitalization, Other)
  Sender: FDA-Public Use
  Company Number: US-NAPPMUNDI-USA-2010-0047008

PATIENT
  Sex: Male

DRUGS (4)
  1. OXYCODONE HCL [Suspect]
     Indication: BREAKTHROUGH PAIN
     Dosage: 15 MG, UNK
  2. OXYCODONE HCL [Suspect]
     Dosage: 30 MG, UNK
  3. OXYCONTIN [Suspect]
     Indication: BACK PAIN
     Dosage: 230 MG, DAILY
     Dates: start: 20100903
  4. LEVOXYL [Concomitant]
     Indication: PRODUCT USED FOR UNKNOWN INDICATION
     Dosage: UNK UNK, UNK

REACTIONS (17)
  - HYPERHIDROSIS [None]
  - PRODUCT FORMULATION ISSUE [None]
  - GENERAL PHYSICAL HEALTH DETERIORATION [None]
  - COLD SWEAT [None]
  - MALAISE [None]
  - DIARRHOEA [None]
  - VOMITING [None]
  - DRUG INEFFECTIVE [None]
  - BACK PAIN [None]
  - THYROIDECTOMY [None]
  - FOREIGN BODY [None]
  - MIGRAINE [None]
  - CHOKING [None]
  - PRODUCT QUALITY ISSUE [None]
  - INADEQUATE ANALGESIA [None]
  - DRUG WITHDRAWAL SYNDROME [None]
  - MEDICATION RESIDUE [None]
